FAERS Safety Report 10791749 (Version 1)
Quarter: 2015Q1

REPORT INFORMATION
  Report Type: Spontaneous
  Country: US (occurrence: US)
  Receive Date: 20150213
  Receipt Date: 20150213
  Transmission Date: 20150721
  Serious: No
  Sender: FDA-Public Use
  Company Number: US-ASTRAZENECA-2015SE11103

PATIENT
  Sex: Female
  Weight: 44.5 kg

DRUGS (8)
  1. SPIRIVA [Concomitant]
     Active Substance: TIOTROPIUM BROMIDE MONOHYDRATE
     Indication: EMPHYSEMA
  2. SYMBICORT [Suspect]
     Active Substance: BUDESONIDE\FORMOTEROL FUMARATE DIHYDRATE
     Indication: CHRONIC OBSTRUCTIVE PULMONARY DISEASE
     Dosage: 160/4.5, 2 PUFFS BID, TWO TIMES A DAY
     Route: 055
     Dates: start: 2003
  3. STEROIDS-UNSPECIFIED [Suspect]
     Active Substance: UNSPECIFIED INGREDIENT
  4. REQUIP [Concomitant]
     Active Substance: ROPINIROLE HYDROCHLORIDE
     Indication: RESTLESS LEGS SYNDROME
  5. DEPAKOTE [Concomitant]
     Active Substance: DIVALPROEX SODIUM
     Indication: MIGRAINE
  6. SYMBICORT [Suspect]
     Active Substance: BUDESONIDE\FORMOTEROL FUMARATE DIHYDRATE
     Indication: CHRONIC OBSTRUCTIVE PULMONARY DISEASE
     Dosage: 80/4.5, 2 PUFFS BID,TWO TIMES A DAY
     Route: 055
  7. METOPROLOL XL [Suspect]
     Active Substance: METOPROLOL
     Indication: HYPOTENSION
     Route: 048
  8. SPIRIVA [Concomitant]
     Active Substance: TIOTROPIUM BROMIDE MONOHYDRATE
     Indication: ASTHMA

REACTIONS (3)
  - Stomatitis [Recovered/Resolved with Sequelae]
  - Malaise [Unknown]
  - Off label use [Unknown]
